FAERS Safety Report 9751086 (Version 1)
Quarter: 2013Q4

REPORT INFORMATION
  Report Type: Report from Study
  Country: US (occurrence: US)
  Receive Date: 20131212
  Receipt Date: 20131212
  Transmission Date: 20140711
  Serious: Yes (Other)
  Sender: FDA-Public Use
  Company Number: US-TEVA-450274USA

PATIENT
  Age: 38 Year
  Sex: Female

DRUGS (4)
  1. TOPIRAMATE [Suspect]
     Indication: MIGRAINE
  2. SYNTHROID [Concomitant]
  3. VYVANSE [Concomitant]
  4. TRAZODONE [Concomitant]

REACTIONS (1)
  - Abortion spontaneous [Recovered/Resolved]
